FAERS Safety Report 23545302 (Version 6)
Quarter: 2024Q2

REPORT INFORMATION
  Report Type: Report from Study
  Country: US (occurrence: US)
  Receive Date: 20240220
  Receipt Date: 20240429
  Transmission Date: 20240716
  Serious: Yes (Other)
  Sender: FDA-Public Use
  Company Number: US-MYLANLABS-2024M1014929

PATIENT
  Sex: Female
  Weight: 64.86 kg

DRUGS (4)
  1. GLATIRAMER ACETATE [Suspect]
     Active Substance: GLATIRAMER ACETATE
     Indication: Multiple sclerosis
     Dosage: 20 MILLIGRAM, QD
     Route: 058
     Dates: end: 202403
  2. GLATIRAMER ACETATE [Suspect]
     Active Substance: GLATIRAMER ACETATE
     Indication: Product used for unknown indication
  3. GLATIRAMER ACETATE [Suspect]
     Active Substance: GLATIRAMER ACETATE
     Indication: Multiple sclerosis
     Dosage: 40 MILLIGRAM, 3XW
     Route: 065
  4. GLATIRAMER ACETATE [Suspect]
     Active Substance: GLATIRAMER ACETATE
     Indication: Torticollis

REACTIONS (14)
  - Thrombosis [Unknown]
  - Intervertebral disc disorder [Unknown]
  - Depression [Unknown]
  - Contusion [Unknown]
  - Fallopian tube neoplasm [Unknown]
  - Peroneal nerve palsy [Unknown]
  - Injection site pain [Unknown]
  - Injection site mass [Unknown]
  - Injection site nodule [Recovering/Resolving]
  - Headache [Unknown]
  - Erythema [Unknown]
  - Influenza [Unknown]
  - Device difficult to use [Unknown]
  - Off label use [Unknown]
